FAERS Safety Report 23535457 (Version 1)
Quarter: 2024Q1

REPORT INFORMATION
  Report Type: Spontaneous
  Country: KR (occurrence: None)
  Receive Date: 20240218
  Receipt Date: 20240218
  Transmission Date: 20240410
  Serious: Yes (Death)
  Sender: FDA-Public Use
  Company Number: 2024A039345

PATIENT
  Age: 22979 Day
  Sex: Male

DRUGS (9)
  1. IMFINZI [Suspect]
     Active Substance: DURVALUMAB
     Dosage: 500MG / 3VIAL
     Dates: start: 20230530
  2. IMFINZI [Suspect]
     Active Substance: DURVALUMAB
     Dosage: 500MG / 3VIAL
     Dates: start: 20230622
  3. IMFINZI [Suspect]
     Active Substance: DURVALUMAB
     Dosage: 500MG / 3VIAL
     Dates: start: 20230713
  4. IMFINZI [Suspect]
     Active Substance: DURVALUMAB
     Dosage: 500MG / 3VIAL
     Dates: start: 20230805
  5. IMFINZI [Suspect]
     Active Substance: DURVALUMAB
     Dosage: 500MG / 3VIAL
     Dates: start: 20230918
  6. IMFINZI [Suspect]
     Active Substance: DURVALUMAB
     Dosage: 500MG / 3VIAL
     Dates: start: 20231019
  7. IMFINZI [Suspect]
     Active Substance: DURVALUMAB
     Dosage: 500MG / 3VIAL
     Dates: start: 20231113
  8. IMFINZI [Suspect]
     Active Substance: DURVALUMAB
     Dosage: 500MG / 3VIAL
     Dates: start: 20231206
  9. IMFINZI [Suspect]
     Active Substance: DURVALUMAB
     Dosage: 500MG / 3VIAL
     Dates: start: 20231228

REACTIONS (1)
  - Hepatic infection [Fatal]

NARRATIVE: CASE EVENT DATE: 20240111
